FAERS Safety Report 10414911 (Version 15)
Quarter: 2021Q1

REPORT INFORMATION
  Report Type: Report from Study
  Country: CA (occurrence: CA)
  Receive Date: 20140828
  Receipt Date: 20210119
  Transmission Date: 20210419
  Serious: Yes (Other)
  Sender: FDA-Public Use
  Company Number: PHHY2012CA025137

PATIENT
  Age: 66 Year
  Sex: Female

DRUGS (7)
  1. CRESTOR [Concomitant]
     Active Substance: ROSUVASTATIN CALCIUM
     Indication: PRODUCT USED FOR UNKNOWN INDICATION
     Dosage: UNK
     Route: 065
  2. VITAMIN D [Concomitant]
     Active Substance: VITAMIN D NOS
     Indication: PRODUCT USED FOR UNKNOWN INDICATION
     Dosage: UNK
     Route: 065
  3. SANDOSTATIN LAR DEPOT [Suspect]
     Active Substance: OCTREOTIDE ACETATE
     Dosage: 30 MG,QMO (ONCE A MONTH)
     Route: 030
     Dates: start: 20111206
  4. MULTIVITAMINS [Concomitant]
     Active Substance: VITAMINS
     Indication: PRODUCT USED FOR UNKNOWN INDICATION
     Dosage: UNK
     Route: 065
  5. CALCIUM [Concomitant]
     Active Substance: CALCIUM
     Indication: PRODUCT USED FOR UNKNOWN INDICATION
     Dosage: UNK
     Route: 065
  6. SANDOSTATIN LAR DEPOT [Suspect]
     Active Substance: OCTREOTIDE ACETATE
     Dosage: 30 MG,QMO (EVERY 4 WEEKS)
     Route: 030
     Dates: start: 20110518
  7. SANDOSTATIN LAR DEPOT [Suspect]
     Active Substance: OCTREOTIDE ACETATE
     Indication: CARCINOID TUMOUR
     Dosage: 20 MG, QMO (EVERY 4 WEEKS)
     Route: 030
     Dates: start: 20110518, end: 20111104

REACTIONS (19)
  - Malignant neoplasm progression [Unknown]
  - Syncope [Unknown]
  - Vertigo [Unknown]
  - Nausea [Not Recovered/Not Resolved]
  - Dizziness [Unknown]
  - Carcinoid tumour [Unknown]
  - Hypertension [Unknown]
  - Hyperparathyroidism [Unknown]
  - Anxiety [Unknown]
  - Blood pressure diastolic increased [Unknown]
  - Blood pressure increased [Recovered/Resolved]
  - Injection site pain [Unknown]
  - Vomiting [Not Recovered/Not Resolved]
  - Injection site haemorrhage [Unknown]
  - Body temperature decreased [Unknown]
  - Rubber sensitivity [Unknown]
  - Herpes zoster [Unknown]
  - Blood pressure systolic increased [Unknown]
  - Incorrect dose administered [Unknown]

NARRATIVE: CASE EVENT DATE: 20140217
